FAERS Safety Report 7257859-2 (Version None)
Quarter: 2011Q1

REPORT INFORMATION
  Report Type: 
  Country: None (occurrence: None)
  Receive Date: 20110129
  Receipt Date: 20100526
  Transmission Date: 20110831
  Serious: No
  Sender: FDA-Public Use
  Company Number: US-ABBOTT-10P-163-0647331-00

PATIENT
  Age: 46 Year
  Sex: Female

DRUGS (14)
  1. OMEPRAZOLE [Concomitant]
     Indication: GASTROOESOPHAGEAL REFLUX DISEASE
  2. RELAFEN [Concomitant]
  3. ARAVA [Concomitant]
     Indication: RHEUMATOID ARTHRITIS
  4. HUMIRA [Suspect]
  5. TOPAMAX [Concomitant]
     Indication: FIBROMYALGIA
  6. ZYPREXA [Concomitant]
     Indication: BIPOLAR I DISORDER
  7. NEURONTIN [Concomitant]
  8. PLAQUENIL [Concomitant]
  9. HYDROCHLOROTHIAZIDE [Concomitant]
     Indication: FLUID RETENTION
     Dosage: 1/2 TABLET AS NEEDED
  10. CELEXA [Concomitant]
  11. HUMIRA [Suspect]
     Indication: RHEUMATOID ARTHRITIS
     Dates: start: 20090501
  12. SALAGEN [Concomitant]
     Indication: DRY MOUTH
  13. TRAZODONE [Concomitant]
     Dosage: 1/2 PM
  14. GEMFIBROZIL [Concomitant]

REACTIONS (5)
  - DRUG INEFFECTIVE [None]
  - INJECTION SITE HAEMATOMA [None]
  - PAIN [None]
  - WRONG TECHNIQUE IN DRUG USAGE PROCESS [None]
  - INJECTION SITE DISCOLOURATION [None]
